FAERS Safety Report 16781413 (Version 3)
Quarter: 2020Q3

REPORT INFORMATION
  Report Type: Spontaneous
  Country: US (occurrence: US)
  Receive Date: 20190906
  Receipt Date: 20200703
  Transmission Date: 20201102
  Serious: Yes (Death, Other)
  Sender: FDA-Public Use
  Company Number: US-ASTRAZENECA-2019SF26407

PATIENT
  Age: 59 Year
  Sex: Male
  Weight: 90.7 kg

DRUGS (32)
  1. ISOSORBIDE MONONITRATE. [Concomitant]
     Active Substance: ISOSORBIDE MONONITRATE
  2. HYDROXYZINE [Concomitant]
     Active Substance: HYDROXYZINE HYDROCHLORIDE
  3. NEXIUM [Suspect]
     Active Substance: ESOMEPRAZOLE MAGNESIUM
     Indication: GASTROOESOPHAGEAL REFLUX DISEASE
     Route: 048
     Dates: start: 200510, end: 201610
  4. PRILOSEC [Suspect]
     Active Substance: OMEPRAZOLE MAGNESIUM
     Indication: GASTROOESOPHAGEAL REFLUX DISEASE
     Route: 048
     Dates: start: 2010, end: 2011
  5. PREVACID [Suspect]
     Active Substance: LANSOPRAZOLE
     Indication: GASTROOESOPHAGEAL REFLUX DISEASE
     Route: 065
     Dates: start: 200510, end: 201610
  6. METOPROLOL. [Concomitant]
     Active Substance: METOPROLOL
     Indication: HYPERTENSION
     Dates: start: 2012, end: 2014
  7. HYDROCORTISONE. [Concomitant]
     Active Substance: HYDROCORTISONE
  8. FENOFIBRATE. [Concomitant]
     Active Substance: FENOFIBRATE
  9. TOPROL XL [Concomitant]
     Active Substance: METOPROLOL SUCCINATE
  10. LYRICA [Concomitant]
     Active Substance: PREGABALIN
  11. PREVACID [Suspect]
     Active Substance: LANSOPRAZOLE
     Indication: GASTROOESOPHAGEAL REFLUX DISEASE
     Route: 065
     Dates: start: 20051019
  12. NIFEDIPINE. [Concomitant]
     Active Substance: NIFEDIPINE
  13. TEMAZEPAM. [Concomitant]
     Active Substance: TEMAZEPAM
  14. NOVOLOG [Concomitant]
     Active Substance: INSULIN ASPART
  15. TACROLIMUS. [Concomitant]
     Active Substance: TACROLIMUS
  16. NITROGLYCERINE [Concomitant]
     Active Substance: NITROGLYCERIN
  17. LANTUS [Concomitant]
     Active Substance: INSULIN GLARGINE
  18. CYMBALTA [Concomitant]
     Active Substance: DULOXETINE HYDROCHLORIDE
  19. GABAPENTIN. [Concomitant]
     Active Substance: GABAPENTIN
  20. NEXIUM [Suspect]
     Active Substance: ESOMEPRAZOLE MAGNESIUM
     Indication: GASTROOESOPHAGEAL REFLUX DISEASE
     Route: 048
     Dates: start: 20110103
  21. SIMVASTATIN. [Concomitant]
     Active Substance: SIMVASTATIN
     Indication: HYPERTENSION
     Dates: start: 2014
  22. OXYCODONE [Concomitant]
     Active Substance: OXYCODONE
  23. FENOFIBRATE. [Concomitant]
     Active Substance: FENOFIBRATE
  24. ALPRAZOLAM. [Concomitant]
     Active Substance: ALPRAZOLAM
  25. LISINOPRIL. [Concomitant]
     Active Substance: LISINOPRIL
  26. PRILOSEC [Suspect]
     Active Substance: OMEPRAZOLE MAGNESIUM
     Indication: GASTROOESOPHAGEAL REFLUX DISEASE
     Route: 048
     Dates: start: 200510, end: 201610
  27. PREVACID [Suspect]
     Active Substance: LANSOPRAZOLE
     Indication: GASTROOESOPHAGEAL REFLUX DISEASE
     Route: 065
     Dates: start: 2005, end: 2006
  28. LOW?DOSE ASPIRIN [Concomitant]
     Active Substance: ASPIRIN
     Indication: CARDIAC DISORDER
  29. VALCYTE [Concomitant]
     Active Substance: VALGANCICLOVIR HYDROCHLORIDE
  30. NEXIUM [Suspect]
     Active Substance: ESOMEPRAZOLE MAGNESIUM
     Indication: GASTROOESOPHAGEAL REFLUX DISEASE
     Route: 048
     Dates: start: 2011, end: 2015
  31. DULOXETINE. [Concomitant]
     Active Substance: DULOXETINE
  32. NIFEDIAC CC [Concomitant]
     Active Substance: NIFEDIPINE

REACTIONS (6)
  - Wound [Fatal]
  - Chronic kidney disease [Unknown]
  - End stage renal disease [Unknown]
  - Cerebrovascular accident [Fatal]
  - Acute kidney injury [Unknown]
  - Sepsis [Fatal]

NARRATIVE: CASE EVENT DATE: 2013
